FAERS Safety Report 8492799-2 (Version None)
Quarter: 2012Q3

REPORT INFORMATION
  Report Type: 
  Country: None (occurrence: None)
  Receive Date: 20120706
  Receipt Date: 20120628
  Transmission Date: 20120928
  Serious: Yes (Hospitalization)
  Sender: FDA-Public Use
  Company Number: TR-GE HEALTHCARE MEDICAL DIAGNOSTICS-OMPQ-NO-1206L-0695

PATIENT
  Age: 56 Year
  Sex: Male

DRUGS (1)
  1. OMNIPAQUE 140 [Suspect]
     Indication: CHEST PAIN
     Route: 013

REACTIONS (2)
  - BLINDNESS TRANSIENT [None]
  - BLINDNESS [None]
